FAERS Safety Report 4813161-7 (Version None)
Quarter: 2005Q4

REPORT INFORMATION
  Report Type: 
  Country: None (occurrence: None)
  Receive Date: 20051028
  Receipt Date: 20050621
  Transmission Date: 20060501
  Serious: No
  Sender: FDA-Public Use
  Company Number: US-GLAXOSMITHKLINE-A0563502A

PATIENT
  Age: 47 Year
  Sex: Female
  Weight: 55.9 kg

DRUGS (2)
  1. ADVAIR DISKUS 100/50 [Suspect]
     Indication: MULTIPLE ALLERGIES
     Dosage: 1PUFF TWICE PER DAY
     Route: 055
     Dates: start: 20040101, end: 20050620
  2. LISTERINE [Concomitant]
     Route: 002

REACTIONS (1)
  - ORAL CANDIDIASIS [None]
